FAERS Safety Report 9776118 (Version 4)
Quarter: 2014Q4

REPORT INFORMATION
  Report Type: Report from Study
  Country: PL (occurrence: PL)
  Receive Date: 20131220
  Receipt Date: 20141006
  Transmission Date: 20150529
  Serious: Yes (Hospitalization, Disabling)
  Sender: FDA-Public Use
  Company Number: PL-UCBSA-105821

PATIENT
  Age: 52 Year
  Sex: Female
  Weight: 73 kg

DRUGS (5)
  1. OMEPRAZOLE. [Concomitant]
     Active Substance: OMEPRAZOLE
     Indication: PEPTIC ULCER
     Dosage: 20 MG, ONCE DAILY (QD)
     Route: 048
     Dates: start: 20121217
  2. DICLOPHENAC [Concomitant]
     Active Substance: DICLOFENAC SODIUM
     Indication: RHEUMATOID ARTHRITIS
     Dosage: 75 MG, 2X/DAY (BID)
     Route: 048
     Dates: start: 20130104
  3. CERTOLIZUMAB PEGOL RA [Suspect]
     Active Substance: CERTOLIZUMAB PEGOL
     Indication: RHEUMATOID ARTHRITIS
     Dosage: 0/200 MG
     Route: 058
     Dates: start: 20130205, end: 20130805
  4. METHOTREXATE [Concomitant]
     Active Substance: METHOTREXATE
     Indication: RHEUMATOID ARTHRITIS
     Dosage: 25 MG, WEEKLY (QW)
     Route: 048
     Dates: start: 20130205
  5. ACIDUM FOLICUM [Concomitant]
     Active Substance: FOLIC ACID
     Indication: RHEUMATOID ARTHRITIS
     Dosage: 5 MG, WEEKLY (QW)
     Route: 048
     Dates: start: 20130209

REACTIONS (2)
  - Ovarian cancer [Recovered/Resolved with Sequelae]
  - Endometrial cancer [Recovered/Resolved with Sequelae]

NARRATIVE: CASE EVENT DATE: 201307
